FAERS Safety Report 13192142 (Version 2)
Quarter: 2017Q1

REPORT INFORMATION
  Report Type: Spontaneous
  Country: UA (occurrence: UA)
  Receive Date: 20170207
  Receipt Date: 20170213
  Transmission Date: 20170428
  Serious: Yes (Other)
  Sender: FDA-Public Use
  Company Number: PHHY2017UA014509

PATIENT
  Age: 27 Year
  Sex: Male

DRUGS (1)
  1. RETARPEN [Suspect]
     Active Substance: PENICILLIN G BENZATHINE
     Indication: BACTERIAL INFECTION
     Dosage: 2400000 IU
     Route: 030
     Dates: start: 20170121, end: 20170121

REACTIONS (6)
  - Asthenia [Recovered/Resolved]
  - Dizziness [Recovered/Resolved]
  - Seizure [Recovered/Resolved]
  - Clonus [Recovered/Resolved]
  - Anxiety [Recovered/Resolved]
  - Confusional state [Recovered/Resolved]

NARRATIVE: CASE EVENT DATE: 20170121
